APPROVED DRUG PRODUCT: CERVIDIL
Active Ingredient: DINOPROSTONE
Strength: 10MG
Dosage Form/Route: INSERT, EXTENDED RELEASE;VAGINAL
Application: N020411 | Product #001
Applicant: FERRING PHARMACEUTICALS INC
Approved: Mar 30, 1995 | RLD: Yes | RS: Yes | Type: RX